FAERS Safety Report 4483957-2 (Version None)
Quarter: 2004Q4

REPORT INFORMATION
  Report Type: 
  Country: None (occurrence: None)
  Receive Date: 20041021
  Receipt Date: 20041005
  Transmission Date: 20050328
  Serious: Yes (Other)
  Sender: FDA-Public Use
  Company Number: 2004237232US

PATIENT
  Age: 23 Year
  Sex: Male

DRUGS (10)
  1. DELTASONE [Suspect]
     Indication: IMMUNOSUPPRESSION
     Dosage: 5 MG, QD
  2. CYCLOSPORINE [Suspect]
     Dosage: SEE IMAGE
     Dates: end: 20000701
  3. SIROLIMUS [Suspect]
     Dosage: 3 MG, QD
     Dates: start: 20000701
  4. FENOFIBRATE [Suspect]
     Dosage: 67 MG, QD
     Dates: start: 20011001
  5. PRAVASTATIN [Suspect]
     Dates: end: 20011001
  6. AZATHIOPRINE [Suspect]
     Dates: end: 20000701
  7. AMLODIPINE [Concomitant]
  8. LABETALOL HCL [Concomitant]
  9. ALLOPURINOL [Concomitant]
  10. ALENDRONATE SODIUM [Concomitant]

REACTIONS (3)
  - BLOOD CREATINE PHOSPHOKINASE INCREASED [None]
  - BLOOD CREATININE INCREASED [None]
  - MYALGIA [None]
